FAERS Safety Report 8735738 (Version 2)
Quarter: 2012Q4

REPORT INFORMATION
  Report Type: Report from Study
  Country: CN (occurrence: CN)
  Receive Date: 20120822
  Receipt Date: 20120831
  Transmission Date: 20130627
  Serious: Yes (Hospitalization)
  Sender: FDA-Public Use
  Company Number: CN-NOVOPROD-357603

PATIENT
  Age: 56 Year
  Sex: Female
  Weight: 64.3 kg

DRUGS (4)
  1. NOVOMIX 30 PENFILL 3 ML [Suspect]
     Indication: TYPE 2 DIABETES MELLITUS
     Dosage: 52 IU, bid
     Dates: start: 20120628
  2. ASPIRIN E.C [Concomitant]
     Dosage: 100 mg, qd
     Route: 048
     Dates: start: 2007
  3. VALSARTAN [Concomitant]
  4. FENOFIBRATE [Concomitant]
     Indication: HYPERLIPIDAEMIA
     Dosage: 0.16 g, UNK
     Route: 048
     Dates: start: 20120807

REACTIONS (1)
  - Spinal osteoarthritis [Recovered/Resolved]
